FAERS Safety Report 11306526 (Version 1)
Quarter: 2015Q3

REPORT INFORMATION
  Report Type: Report from Study
  Country: DE (occurrence: DE)
  Receive Date: 20150723
  Receipt Date: 20150723
  Transmission Date: 20151125
  Serious: Yes (Hospitalization)
  Sender: FDA-Public Use
  Company Number: PHHY2014DE155265

PATIENT
  Age: 49 Year
  Sex: Male
  Weight: 98 kg

DRUGS (3)
  1. MINIRIN [Concomitant]
     Active Substance: DESMOPRESSIN ACETATE
     Indication: DIABETES INSIPIDUS
     Dosage: 1.5 DF- 0.1 MG
     Route: 065
     Dates: start: 20131016
  2. DEKRISTOL [Concomitant]
     Active Substance: CHOLECALCIFEROL
     Indication: OSTEOPENIA
     Dosage: 20000 OT, QW
     Route: 065
     Dates: start: 20120509
  3. SOM230 [Suspect]
     Active Substance: PASIREOTIDE
     Indication: PITUITARY-DEPENDENT CUSHING^S SYNDROME
     Dosage: 600 UG, BID
     Route: 058
     Dates: start: 20140122, end: 20141109

REACTIONS (6)
  - Circulatory collapse [Recovered/Resolved]
  - Nausea [Recovered/Resolved]
  - Paraesthesia [Recovered/Resolved]
  - Hypoaesthesia [Recovered/Resolved]
  - Dizziness [Recovered/Resolved]
  - Cardiovascular insufficiency [Recovered/Resolved]

NARRATIVE: CASE EVENT DATE: 20141110
